FAERS Safety Report 13902869 (Version 1)
Quarter: 2017Q3

REPORT INFORMATION
  Report Type: Spontaneous
  Country: US (occurrence: US)
  Receive Date: 20170824
  Receipt Date: 20170824
  Transmission Date: 20171127
  Serious: Yes (Hospitalization, Other)
  Sender: FDA-Public Use
  Company Number: US-TEVA-799314USA

PATIENT
  Sex: Female

DRUGS (3)
  1. TAGAMET [Concomitant]
     Active Substance: CIMETIDINE
  2. ENOXAPARIN [Suspect]
     Active Substance: ENOXAPARIN
     Indication: THROMBOSIS
     Dosage: 120 MG/0.8 ML
     Dates: start: 2015
  3. BENADRYL [Concomitant]
     Active Substance: DIPHENHYDRAMINE HYDROCHLORIDE

REACTIONS (4)
  - Urticaria [Recovering/Resolving]
  - Thrombosis [Unknown]
  - Pain [Recovering/Resolving]
  - Fall [Unknown]

NARRATIVE: CASE EVENT DATE: 201706
